FAERS Safety Report 24790817 (Version 1)
Quarter: 2024Q4

REPORT INFORMATION
  Report Type: Spontaneous
  Country: DK (occurrence: DK)
  Receive Date: 20241230
  Receipt Date: 20241230
  Transmission Date: 20250115
  Serious: Yes (Congenital Anomaly)
  Sender: MYLAN
  Company Number: None

PATIENT
  Sex: Male

DRUGS (4)
  1. SERTRALINE [Suspect]
     Active Substance: SERTRALINE HYDROCHLORIDE
     Indication: Depression
     Dosage: 200 MILLIGRAM, QD
     Route: 064
     Dates: start: 20220323
  2. QUETIAPINE [Suspect]
     Active Substance: QUETIAPINE
     Indication: Mental disorder
     Dosage: 75 MILLIGRAM, QD (FILM COATED TABLETS)
     Route: 064
     Dates: start: 20210603
  3. METHYLPHENIDATE [Suspect]
     Active Substance: METHYLPHENIDATE
     Indication: Attention deficit hyperactivity disorder
     Dosage: 40 MILLIGRAM, QD, ADDITIONALLY, 5-30MG AS NECESSARY. MODIFIED-RELEASE CAPSULE, HARD
     Route: 064
     Dates: start: 20191031
  4. METHYLPHENIDATE [Suspect]
     Active Substance: METHYLPHENIDATE
     Dosage: 30 MILLIGRAM, QD, ADDITIONALLY, 5-30MG AS NECESSARY. MODIFIED-RELEASE CAPSULE, HARD
     Route: 064
     Dates: start: 20191031

REACTIONS (2)
  - Low birth weight baby [Not Recovered/Not Resolved]
  - Foetal exposure during pregnancy [Recovered/Resolved]

NARRATIVE: CASE EVENT DATE: 20240101
